FAERS Safety Report 17892165 (Version 1)
Quarter: 2020Q2

REPORT INFORMATION
  Report Type: Spontaneous
  Country: NZ (occurrence: NZ)
  Receive Date: 20200612
  Receipt Date: 20200612
  Transmission Date: 20200714
  Serious: Yes (Other)
  Sender: FDA-Public Use
  Company Number: NZ-ELI_LILLY_AND_COMPANY-NZ202006001823

PATIENT
  Age: 38 Year
  Sex: Male

DRUGS (3)
  1. OLANZAPINE PAMOATE 405MG [Suspect]
     Active Substance: OLANZAPINE PAMOATE
     Indication: SCHIZOPHRENIA
     Dosage: 405 MG, UNKNOWN
     Route: 030
     Dates: start: 20160531, end: 20181204
  2. OLANZAPINE PAMOATE 405MG [Suspect]
     Active Substance: OLANZAPINE PAMOATE
     Indication: SCHIZOPHRENIA
     Dosage: 405 MG, UNKNOWN
     Route: 030
     Dates: start: 20160531, end: 20181204
  3. OLANZAPINE PAMOATE 405MG [Suspect]
     Active Substance: OLANZAPINE PAMOATE
     Indication: SCHIZOPHRENIA
     Dosage: 405 MG, UNKNOWN
     Route: 030
     Dates: start: 20160531, end: 20181204

REACTIONS (4)
  - Injection site swelling [Not Recovered/Not Resolved]
  - Injection site inflammation [Not Recovered/Not Resolved]
  - Injection site bruising [Not Recovered/Not Resolved]
  - Injection site pain [Not Recovered/Not Resolved]

NARRATIVE: CASE EVENT DATE: 20181128
